FAERS Safety Report 9433389 (Version 1)
Quarter: 2013Q3

REPORT INFORMATION
  Report Type: Spontaneous
  Country: DE (occurrence: DE)
  Receive Date: 20130731
  Receipt Date: 20130731
  Transmission Date: 20140515
  Serious: Yes (Disabling, Other)
  Sender: FDA-Public Use
  Company Number: DE-TEVA-421117GER

PATIENT
  Age: 71 Year
  Sex: Female

DRUGS (4)
  1. AMOXICILLIN W/CLAVULANIC ACID [Suspect]
     Indication: BRONCHITIS
     Dosage: DF = AMOXICILLIN 875MG/CLAVULANIC ACID 125MG
     Route: 065
  2. ASPIRIN [Interacting]
     Dosage: 100 MILLIGRAM DAILY;
     Route: 065
  3. SIMVASTATIN [Concomitant]
     Dosage: 20 MILLIGRAM DAILY;
     Route: 065
  4. EZETIMIBE [Concomitant]
     Dosage: 10 MILLIGRAM DAILY;
     Route: 065

REACTIONS (2)
  - Vestibular disorder [Not Recovered/Not Resolved]
  - Drug interaction [Not Recovered/Not Resolved]
